FAERS Safety Report 19830432 (Version 4)
Quarter: 2022Q4

REPORT INFORMATION
  Report Type: Spontaneous
  Country: US (occurrence: US)
  Receive Date: 20210915
  Receipt Date: 20221130
  Transmission Date: 20230113
  Serious: Yes (Other)
  Sender: FDA-Public Use
  Company Number: US-SUN PHARMACEUTICAL INDUSTRIES LTD-2021R1-310796

PATIENT
  Sex: Female

DRUGS (1)
  1. TIZANIDINE [Suspect]
     Active Substance: TIZANIDINE
     Indication: Muscle spasms
     Dosage: UNK, TID
     Route: 065
     Dates: start: 20210824

REACTIONS (5)
  - Seizure [Unknown]
  - Hallucination [Unknown]
  - Depression [Unknown]
  - Heart rate increased [Unknown]
  - Malaise [Unknown]
